FAERS Safety Report 15689782 (Version 1)
Quarter: 2018Q4

REPORT INFORMATION
  Report Type: Spontaneous
  Country: US (occurrence: US)
  Receive Date: 20181205
  Receipt Date: 20181205
  Transmission Date: 20190205
  Serious: No
  Sender: FDA-Public Use
  Company Number: US-DSJP-DSU-2017-147443

PATIENT

DRUGS (1)
  1. BENICAR [Suspect]
     Active Substance: OLMESARTAN MEDOXOMIL
     Indication: PRODUCT USED FOR UNKNOWN INDICATION
     Dosage: 20 MG, QD
     Route: 048
     Dates: start: 20100427

REACTIONS (4)
  - Large intestine polyp [Unknown]
  - Haemorrhoids [Unknown]
  - Sprue-like enteropathy [Unknown]
  - Coeliac disease [Recovering/Resolving]

NARRATIVE: CASE EVENT DATE: 20131120
